FAERS Safety Report 8518436-6 (Version None)
Quarter: 2012Q3

REPORT INFORMATION
  Report Type: 
  Country: None (occurrence: None)
  Receive Date: 20120718
  Receipt Date: 20120314
  Transmission Date: 20120928
  Serious: No
  Sender: FDA-Public Use
  Company Number: US-BRISTOL-MYERS SQUIBB COMPANY-16431538

PATIENT
  Age: 88 Year
  Sex: Female

DRUGS (3)
  1. METOPROLOL SUCCINATE [Concomitant]
  2. HYDROCHLOROTHIAZIDE [Concomitant]
     Dosage: HCTZ
  3. COUMADIN [Suspect]
     Dosage: FOR ABOUT 10 YEARS,LAST YEAR

REACTIONS (3)
  - NASOPHARYNGITIS [None]
  - ALOPECIA [None]
  - INTERNATIONAL NORMALISED RATIO ABNORMAL [None]
